FAERS Safety Report 21546763 (Version 1)
Quarter: 2022Q4

REPORT INFORMATION
  Report Type: Other
  Country: PL (occurrence: PL)
  Receive Date: 20221103
  Receipt Date: 20221103
  Transmission Date: 20230113
  Serious: Yes (Other)
  Sender: FDA-Public Use
  Company Number: PL-CELLTRION INC.-2022PL017772

PATIENT

DRUGS (5)
  1. RITUXIMAB [Suspect]
     Active Substance: RITUXIMAB
     Indication: Diffuse large B-cell lymphoma refractory
     Dosage: 375 MILLIGRAM/SQ. METER EVERY 21 DAYS (375 MG/M2 1D, IN COMBINATION WITH BENDAMUSTINE AND POLIVY)
     Route: 065
     Dates: start: 20220601
  2. RITUXIMAB [Suspect]
     Active Substance: RITUXIMAB
     Dosage: R-CHOP
     Route: 065
     Dates: start: 201401
  3. BENDAMUSTINE [Suspect]
     Active Substance: BENDAMUSTINE
     Indication: Diffuse large B-cell lymphoma refractory
     Dosage: 90 MG/M2 IV 1,2 D. EVERY 21 DAYS
     Route: 065
     Dates: start: 20220601
  4. POLIVY [Suspect]
     Active Substance: POLATUZUMAB VEDOTIN-PIIQ
     Indication: Diffuse large B-cell lymphoma refractory
     Dosage: 1.8 MG/KG IV 1 D. EVERY 21 DAYS
     Route: 065
     Dates: start: 20220601
  5. CYCLOPHOSPHAMIDE\DOXORUBICIN\PREDNISONE\VINCRISTINE [Suspect]
     Active Substance: CYCLOPHOSPHAMIDE\DOXORUBICIN\PREDNISONE\VINCRISTINE
     Indication: Diffuse large B-cell lymphoma refractory
     Route: 065
     Dates: start: 201401

REACTIONS (5)
  - Enterococcal sepsis [Unknown]
  - Nasal congestion [Unknown]
  - Epistaxis [Unknown]
  - Dizziness [Unknown]
  - Pain [Unknown]

NARRATIVE: CASE EVENT DATE: 20220301
